FAERS Safety Report 10613420 (Version 2)
Quarter: 2015Q2

REPORT INFORMATION
  Report Type: Spontaneous
  Country: JP (occurrence: JP)
  Receive Date: 20141128
  Receipt Date: 20150413
  Transmission Date: 20150821
  Serious: Yes (Other)
  Sender: FDA-Public Use
  Company Number: JP-MERCK-1411JPN012235

PATIENT
  Age: 52 Year
  Sex: Female

DRUGS (9)
  1. REBETOL [Suspect]
     Active Substance: RIBAVIRIN
     Dosage: 400 MG, ONCE A DAY
     Route: 048
     Dates: start: 201405, end: 20140730
  2. PEGINTRON [Suspect]
     Active Substance: PEGINTERFERON ALFA-2B
     Dosage: 50 MICROGRAM, 1 PER WEEK
     Route: 058
     Dates: start: 201406, end: 201407
  3. PEGINTRON [Suspect]
     Active Substance: PEGINTERFERON ALFA-2B
     Dosage: 40 MICROGRAM, 1 PER WEEK
     Route: 058
     Dates: start: 201407, end: 20140723
  4. REBETOL [Suspect]
     Active Substance: RIBAVIRIN
     Indication: CHRONIC HEPATITIS C
     Dosage: 600 MG, ONCE A DAY
     Route: 048
     Dates: start: 20140416, end: 201405
  5. SIMEPREVIR [Suspect]
     Active Substance: SIMEPREVIR
     Indication: CHRONIC HEPATITIS C
     Dosage: 100 MG, ONCE A DAY
     Route: 048
     Dates: start: 20140417, end: 20140709
  6. PEGINTRON [Suspect]
     Active Substance: PEGINTERFERON ALFA-2B
     Indication: CHRONIC HEPATITIS C
     Dosage: 80 MICROGRAM, 1 PER WEEK
     Route: 058
     Dates: start: 20140416, end: 201404
  7. PEGINTRON [Suspect]
     Active Substance: PEGINTERFERON ALFA-2B
     Dosage: 40 MICROGRAM, 1 PER WEEK
     Route: 058
     Dates: start: 201404, end: 201405
  8. PEGINTRON [Suspect]
     Active Substance: PEGINTERFERON ALFA-2B
     Dosage: 50 MICROGRAM, 1 PER WEEK
     Route: 058
     Dates: start: 201405, end: 201405
  9. PEGINTRON [Suspect]
     Active Substance: PEGINTERFERON ALFA-2B
     Dosage: 60 MICROGRAM, 1 PER WEEK
     Route: 058
     Dates: start: 201405, end: 201406

REACTIONS (1)
  - Mononeuropathy multiplex [Recovering/Resolving]

NARRATIVE: CASE EVENT DATE: 201407
